FAERS Safety Report 4649133-5 (Version None)
Quarter: 2005Q2

REPORT INFORMATION
  Report Type: 
  Country: None (occurrence: None)
  Receive Date: 20050427
  Receipt Date: 20050408
  Transmission Date: 20051028
  Serious: Yes (Hospitalization)
  Sender: FDA-Public Use
  Company Number: USA050495205

PATIENT
  Age: 83 Year
  Sex: Female

DRUGS (15)
  1. FORTEO [Suspect]
     Indication: OSTEOPOROSIS
     Dosage: 20 UG DAY
     Dates: start: 20040401
  2. ENALAPRIL MALEATE [Concomitant]
  3. ATENOLOL [Concomitant]
  4. L-THYROXINE [Concomitant]
  5. DIGOXIN [Concomitant]
  6. DITROPAN [Concomitant]
  7. PLAVIX [Concomitant]
  8. ASPIRIN [Concomitant]
  9. NAMENDA (MEMANTINE HYDROCHLORIDE) [Concomitant]
  10. ARICEPT [Concomitant]
  11. MEGACE [Concomitant]
  12. DARVOCET-N 100 [Concomitant]
  13. M.V.I. [Concomitant]
  14. KCL (POTASSIUM CHLORIDE) [Concomitant]
  15. NITRO PATCH (GLYCERYL TRINTRATE) [Concomitant]

REACTIONS (3)
  - ASTHENIA [None]
  - DEHYDRATION [None]
  - GAIT DISTURBANCE [None]
